FAERS Safety Report 11000344 (Version 2)
Quarter: 2016Q2

REPORT INFORMATION
  Report Type: Spontaneous
  Country: US (occurrence: US)
  Receive Date: 20150408
  Receipt Date: 20160412
  Transmission Date: 20160815
  Serious: No
  Sender: FDA-Public Use
  Company Number: US-SA-2014SA118444

PATIENT
  Sex: Female

DRUGS (5)
  1. ALLEGRA [Suspect]
     Active Substance: FEXOFENADINE HYDROCHLORIDE
     Indication: NASAL CONGESTION
     Dosage: PRODUCT STARTED COUPLE DAYS AGO.?USED EVERY MORNING FOR ABOUT 2 MONTHS
     Route: 048
     Dates: start: 201408
  2. TAMOXIFEN [Concomitant]
     Active Substance: TAMOXIFEN
     Dosage: TAKING FROM: SINCE 2 WEEKS NOW
     Route: 065
  3. MAGNESIUM [Suspect]
     Active Substance: MAGNESIUM
     Route: 065
  4. ALLEGRA [Suspect]
     Active Substance: FEXOFENADINE HYDROCHLORIDE
     Indication: HYPERSENSITIVITY
     Dosage: PRODUCT STARTED COUPLE DAYS AGO.?USED EVERY MORNING FOR ABOUT 2 MONTHS
     Route: 048
     Dates: start: 201408
  5. CALCIUM [Suspect]
     Active Substance: CALCIUM
     Route: 065

REACTIONS (3)
  - Drug ineffective [Unknown]
  - Muscle spasms [Recovering/Resolving]
  - Therapeutic response unexpected [Unknown]
